FAERS Safety Report 21273349 (Version 1)
Quarter: 2022Q3

REPORT INFORMATION
  Report Type: Spontaneous
  Country: FI (occurrence: FI)
  Receive Date: 20220831
  Receipt Date: 20220831
  Transmission Date: 20221027
  Serious: Yes (Hospitalization, Other)
  Sender: FDA-Public Use
  Company Number: None

PATIENT
  Age: 29 Year
  Sex: Male

DRUGS (3)
  1. CLOZAPINE [Suspect]
     Active Substance: CLOZAPINE
     Indication: Schizophrenia
     Dosage: 325,MG,DAILY
     Route: 048
     Dates: start: 20220104, end: 20220217
  2. SCOPOLAMINE [Concomitant]
     Active Substance: SCOPOLAMINE
     Indication: Salivary hypersecretion
     Dosage: UNK
     Route: 062
     Dates: start: 20220114, end: 20220217
  3. SCHERIPROCT NEO [Concomitant]
     Indication: Haemorrhoids
     Dosage: 2,DF,DAILY
     Route: 054
     Dates: start: 20220114

REACTIONS (8)
  - Throat irritation [Recovered/Resolved]
  - Congestive hepatopathy [Recovered/Resolved]
  - Faeces pale [Recovered/Resolved]
  - Weight decreased [Recovered/Resolved]
  - Hepatocellular injury [Recovered/Resolved]
  - Pyrexia [Recovered/Resolved]
  - Colitis [Recovered/Resolved]
  - Eosinophilia [Recovered/Resolved]

NARRATIVE: CASE EVENT DATE: 20220208
